FAERS Safety Report 14293809 (Version 1)
Quarter: 2017Q4

REPORT INFORMATION
  Report Type: Spontaneous
  Country: US (occurrence: US)
  Receive Date: 20171216
  Receipt Date: 20171216
  Transmission Date: 20180321
  Serious: Yes (Death, Life-Threatening, Other)
  Sender: FDA-Public Use
  Company Number: US-ACCORD-061865

PATIENT
  Age: 58 Year
  Sex: Male

DRUGS (7)
  1. ISONIAZID/ISONIAZID CALCIUM PYRUVINATE/ISONIAZID SODIUM GLUCURONATE [Concomitant]
     Dosage: RIPE THERAPY
     Dates: start: 2015
  2. RIFAMPICIN [Concomitant]
     Active Substance: RIFAMPIN
     Dosage: RIPE THERAPY
     Dates: start: 2015
  3. ETOPOSIDE. [Suspect]
     Active Substance: ETOPOSIDE
     Indication: HISTIOCYTOSIS HAEMATOPHAGIC
     Dosage: HLH94 THERAPY
  4. ADALIMUMAB [Concomitant]
     Active Substance: ADALIMUMAB
     Indication: ACUTE FEBRILE NEUTROPHILIC DERMATOSIS
     Dates: start: 2015
  5. CICLOSPORIN [Concomitant]
     Active Substance: CYCLOSPORINE
     Indication: HISTIOCYTOSIS HAEMATOPHAGIC
     Dosage: HLH94 THERAPY
  6. PYRAZINAMIDE. [Concomitant]
     Active Substance: PYRAZINAMIDE
     Dosage: RIPE THERAPY
     Dates: start: 2015
  7. ETHAMBUTOL [Concomitant]
     Active Substance: ETHAMBUTOL HYDROCHLORIDE
     Dosage: RIPE THERAPY
     Dates: start: 2015

REACTIONS (6)
  - Mucosal inflammation [Fatal]
  - Pyrexia [Fatal]
  - Off label use [Unknown]
  - Bacteraemia [Fatal]
  - Neutropenia [Fatal]
  - Ileus [Fatal]
